FAERS Safety Report 7322107-1 (Version None)
Quarter: 2011Q1

REPORT INFORMATION
  Report Type: 
  Country: None (occurrence: None)
  Receive Date: 20110228
  Receipt Date: 20110217
  Transmission Date: 20110831
  Serious: Yes (Hospitalization)
  Sender: FDA-Public Use
  Company Number: IE-GENENTECH-313577

PATIENT
  Sex: Female

DRUGS (4)
  1. METHYLPREDNISOLONE [Concomitant]
     Indication: PREMEDICATION
     Dosage: 1000 MG, TID
     Route: 042
     Dates: start: 20100525, end: 20100525
  2. PIRITON [Concomitant]
     Indication: PREMEDICATION
     Dosage: 4 MG, QD
     Route: 048
     Dates: start: 20100525, end: 20100525
  3. MABTHERA [Suspect]
     Indication: PRODUCT USED FOR UNKNOWN INDICATION
     Dosage: 1000 MG, DAYS 1+14
     Route: 042
     Dates: start: 20100511, end: 20100525
  4. ACETAMINOPHEN [Concomitant]
     Indication: PREMEDICATION
     Dosage: 1 G, QD
     Route: 048
     Dates: start: 20100525, end: 20100525

REACTIONS (8)
  - DIZZINESS [None]
  - PALLOR [None]
  - FEELING HOT [None]
  - HEAD DISCOMFORT [None]
  - OROPHARYNGEAL PAIN [None]
  - SENSATION OF HEAVINESS [None]
  - DRY THROAT [None]
  - FEELING ABNORMAL [None]
